FAERS Safety Report 25610870 (Version 1)
Quarter: 2025Q3

REPORT INFORMATION
  Report Type: Spontaneous
  Country: US (occurrence: None)
  Receive Date: 20250725
  Receipt Date: 20250725
  Transmission Date: 20251020
  Serious: Yes (Hospitalization)
  Sender: FDA-CTU
  Company Number: None

PATIENT
  Age: 50 Year
  Sex: Male
  Weight: 89.3 kg

DRUGS (2)
  1. ENFORTUMAB VEDOTIN [Suspect]
     Active Substance: ENFORTUMAB VEDOTIN
     Indication: Adenocarcinoma of colon
     Route: 042
     Dates: start: 20250626
  2. DEVICE [Suspect]
     Active Substance: DEVICE

REACTIONS (8)
  - Liver abscess [None]
  - Hepatic cyst [None]
  - Culture positive [None]
  - Klebsiella infection [None]
  - Citrobacter infection [None]
  - Bacterial infection [None]
  - Bile duct stent insertion [None]
  - Complication associated with device [None]

NARRATIVE: CASE EVENT DATE: 20250715
